FAERS Safety Report 19213035 (Version 3)
Quarter: 2022Q1

REPORT INFORMATION
  Report Type: Spontaneous
  Country: AT (occurrence: AT)
  Receive Date: 20210504
  Receipt Date: 20220307
  Transmission Date: 20220423
  Serious: Yes (Other)
  Sender: FDA-Public Use
  Company Number: AT-VELOXIS PHARMACEUTICALS-2021VELAT-000300

PATIENT
  Age: 55 Year
  Sex: Male

DRUGS (5)
  1. ENVARSUS XR [Suspect]
     Active Substance: TACROLIMUS
     Indication: Immunosuppressant drug therapy
     Dosage: 8 NG/ML
     Route: 065
  2. MYCOPHENOLATE MOFETIL [Suspect]
     Active Substance: MYCOPHENOLATE MOFETIL
     Indication: Immunosuppressant drug therapy
     Dosage: UNK
     Route: 065
  3. ALEMTUZUMAB [Suspect]
     Active Substance: ALEMTUZUMAB
     Indication: Immunosuppressant drug therapy
     Dosage: UNK
     Route: 065
  4. NULOJIX [Suspect]
     Active Substance: BELATACEPT
     Indication: Nephropathy
     Dosage: 5 MG/KG, Q6WK
     Route: 065
  5. UNSPECIFIED INGREDIENT [Suspect]
     Active Substance: UNSPECIFIED INGREDIENT
     Indication: Immunosuppressant drug therapy

REACTIONS (11)
  - Transplant rejection [Unknown]
  - Subdural haematoma [Unknown]
  - Drug ineffective [Unknown]
  - Urosepsis [Unknown]
  - Skin papilloma [Unknown]
  - Enterococcal infection [Unknown]
  - Acute kidney injury [Unknown]
  - Hypertension [Unknown]
  - Skin papilloma [Unknown]
  - Papilloma viral infection [Unknown]
  - Off label use [Unknown]
